FAERS Safety Report 4350747-0 (Version None)
Quarter: 2004Q2

REPORT INFORMATION
  Report Type: 
  Country: None (occurrence: None)
  Receive Date: 20040428
  Receipt Date: 20040409
  Transmission Date: 20050107
  Serious: Yes (Other)
  Sender: FDA-Public Use
  Company Number: USA040464574

PATIENT
  Age: 78 Year
  Sex: Female

DRUGS (3)
  1. FORTEO [Suspect]
     Indication: OSTEOPOROSIS
     Dates: start: 20030401
  2. PREDNISONE [Concomitant]
  3. CALCIUM WITH VITAMIN D [Concomitant]

REACTIONS (4)
  - ARRHYTHMIA [None]
  - FALL [None]
  - ORTHOSTATIC HYPOTENSION [None]
  - PHARMACEUTICAL PRODUCT COMPLAINT [None]
